FAERS Safety Report 6647671-7 (Version None)
Quarter: 2010Q1

REPORT INFORMATION
  Report Type: 
  Country: None (occurrence: None)
  Receive Date: 20100323
  Receipt Date: 20100323
  Transmission Date: 20100710
  Serious: Yes (Hospitalization)
  Sender: FDA-Public Use
  Company Number: None

PATIENT
  Sex: Female
  Weight: 65.7716 kg

DRUGS (2)
  1. CRESTOR [Suspect]
     Indication: BLOOD CHOLESTEROL
     Dosage: 1 DAILY AROUND 4-5 YRS
  2. ZETIA [Suspect]
     Indication: BLOOD CHOLESTEROL
     Dosage: 1 DAILY

REACTIONS (2)
  - ILL-DEFINED DISORDER [None]
  - MALAISE [None]
